FAERS Safety Report 11227360 (Version 3)
Quarter: 2015Q3

REPORT INFORMATION
  Report Type: Spontaneous
  Country: US (occurrence: US)
  Receive Date: 20150630
  Receipt Date: 20150713
  Transmission Date: 20151125
  Serious: Yes (Death, Life-Threatening, Hospitalization, Disabling, Other)
  Sender: FDA-Public Use
  Company Number: US-MERCK-1506USA014885

PATIENT
  Sex: Male
  Weight: 113.83 kg

DRUGS (3)
  1. JANUVIA [Suspect]
     Active Substance: SITAGLIPTIN PHOSPHATE
     Indication: TYPE 2 DIABETES MELLITUS
     Dosage: 100 MG, QD
     Route: 048
     Dates: start: 20110227, end: 20111120
  2. BYETTA [Suspect]
     Active Substance: EXENATIDE
     Indication: TYPE 2 DIABETES MELLITUS
     Dosage: 10 MICROGRAM, BID
     Dates: start: 20110105, end: 20111126
  3. ONGLYZA [Suspect]
     Active Substance: SAXAGLIPTIN HYDROCHLORIDE
     Indication: TYPE 2 DIABETES MELLITUS
     Dosage: 5 MG, QD
     Dates: start: 20110214, end: 20110515

REACTIONS (41)
  - Nephrolithiasis [Unknown]
  - Essential hypertension [Unknown]
  - Skin abrasion [Unknown]
  - Diabetes mellitus inadequate control [Unknown]
  - Large intestine polyp [Unknown]
  - Diverticulum [Unknown]
  - Hypophosphataemia [Unknown]
  - Gastric disorder [Unknown]
  - Constipation [Unknown]
  - Pancreatitis relapsing [Not Recovered/Not Resolved]
  - Hypercalcaemia [Unknown]
  - Dysuria [Unknown]
  - Drug hypersensitivity [Unknown]
  - Myocardial infarction [Unknown]
  - Haemorrhoids [Unknown]
  - Erosive duodenitis [Unknown]
  - Barrett^s oesophagus [Unknown]
  - Pancreatic carcinoma metastatic [Fatal]
  - Metastases to liver [Unknown]
  - Hyperkeratosis [Unknown]
  - Atelectasis [Unknown]
  - Gout [Unknown]
  - Tonsillectomy [Unknown]
  - Deep vein thrombosis [Unknown]
  - Hypothyroidism [Unknown]
  - Cataract [Unknown]
  - Feeding tube complication [Unknown]
  - Diabetic neuropathy [Unknown]
  - Coronary artery disease [Unknown]
  - Fall [Unknown]
  - Gastric ulcer [Unknown]
  - Tachypnoea [Unknown]
  - Thrombocytopenia [Unknown]
  - Prostatic calcification [Unknown]
  - Gastric bypass [Unknown]
  - Blood cholesterol increased [Unknown]
  - Renal cyst [Unknown]
  - Polypectomy [Unknown]
  - Hypomagnesaemia [Unknown]
  - Catheterisation cardiac [Unknown]
  - Cataract operation [Unknown]

NARRATIVE: CASE EVENT DATE: 20111005
